FAERS Safety Report 6756688-3 (Version None)
Quarter: 2010Q2

REPORT INFORMATION
  Report Type: 
  Country: None (occurrence: None)
  Receive Date: 20100603
  Receipt Date: 20100603
  Transmission Date: 20101027
  Serious: No
  Sender: FDA-Public Use
  Company Number: None

PATIENT
  Age: 61 Year
  Sex: Male
  Weight: 113.3993 kg

DRUGS (1)
  1. ACTOPLUS MET [Suspect]
     Dosage: 15/850 2X DAILY
     Dates: start: 20100305, end: 20100519

REACTIONS (4)
  - FUNGAL INFECTION [None]
  - PENILE DISCHARGE [None]
  - SKIN EXFOLIATION [None]
  - THERAPEUTIC RESPONSE DECREASED [None]
